FAERS Safety Report 6698125-3 (Version None)
Quarter: 2010Q2

REPORT INFORMATION
  Report Type: 
  Country: None (occurrence: None)
  Receive Date: 20100427
  Receipt Date: 20100416
  Transmission Date: 20101027
  Serious: Yes (Life-Threatening, Other)
  Sender: FDA-Public Use
  Company Number: IT-PFIZER INC-2010048679

PATIENT
  Age: 90 Year
  Sex: Male

DRUGS (2)
  1. DIFLUCAN [Suspect]
     Indication: BRONCHOPNEUMOPATHY
     Dosage: 200 MG, DAILY
     Route: 042
     Dates: start: 20100403, end: 20100406
  2. LEVOXACIN [Suspect]
     Indication: BRONCHOPNEUMOPATHY
     Dosage: 500 MG, DAILY
     Route: 042
     Dates: start: 20100403, end: 20100406

REACTIONS (3)
  - CARDIAC ARREST [None]
  - TORSADE DE POINTES [None]
  - VENTRICULAR FIBRILLATION [None]
